FAERS Safety Report 17888554 (Version 2)
Quarter: 2020Q3

REPORT INFORMATION
  Report Type: Report from Study
  Country: US (occurrence: US)
  Receive Date: 20200612
  Receipt Date: 20200724
  Transmission Date: 20201103
  Serious: No
  Sender: FDA-Public Use
  Company Number: US-009507513-2006USA003495

PATIENT
  Age: 31 Year
  Sex: Female
  Weight: 83.9 kg

DRUGS (1)
  1. IMPLANON [Suspect]
     Active Substance: ETONOGESTREL
     Indication: CONTRACEPTION
     Dosage: ONE IMPLANT EVERY THREE YEARS, STRENGTH 68 MG, ROUTE: LEFT ARM
     Route: 059
     Dates: start: 20171012

REACTIONS (2)
  - Ovarian cyst [Not Recovered/Not Resolved]
  - Amenorrhoea [Not Recovered/Not Resolved]

NARRATIVE: CASE EVENT DATE: 202001
